FAERS Safety Report 5589735-5 (Version None)
Quarter: 2008Q1

REPORT INFORMATION
  Report Type: 
  Country: None (occurrence: None)
  Receive Date: 20080114
  Receipt Date: 20080107
  Transmission Date: 20080703
  Serious: Yes (Hospitalization)
  Sender: FDA-Public Use
  Company Number: IT-BAYER-200810376GPV

PATIENT
  Age: 44 Year
  Sex: Male

DRUGS (1)
  1. ASPIRIN [Suspect]
     Indication: HYPERPYREXIA
     Route: 048
     Dates: start: 20071229, end: 20071229

REACTIONS (1)
  - URTICARIA [None]
